FAERS Safety Report 22111611 (Version 1)
Quarter: 2023Q1

REPORT INFORMATION
  Report Type: Other
  Country: GB (occurrence: GB)
  Receive Date: 20230318
  Receipt Date: 20230318
  Transmission Date: 20230418
  Serious: Yes (Other)
  Sender: FDA-Public Use
  Company Number: GB-MACLEODS PHARMA EU LTD-MAC2023040309

PATIENT

DRUGS (2)
  1. TAMSULOSIN [Suspect]
     Active Substance: TAMSULOSIN
     Indication: Renal colic
     Dosage: 400 MICROGRAM, PRN TABLET (WHEN EPISODIC OF RENAL COLIC)
     Route: 065
     Dates: start: 20230306
  2. NITROFURANTOIN [Concomitant]
     Active Substance: NITROFURANTOIN
     Indication: Urinary tract infection
     Dosage: UNK
     Route: 065
     Dates: start: 20230306

REACTIONS (7)
  - Abdominal pain [Recovered/Resolved]
  - Confusional state [Recovering/Resolving]
  - Dry eye [Recovering/Resolving]
  - Chest pain [Recovering/Resolving]
  - Hypotension [Recovering/Resolving]
  - Nausea [Recovering/Resolving]
  - Urticaria [Recovering/Resolving]

NARRATIVE: CASE EVENT DATE: 20230306
